FAERS Safety Report 9285590 (Version 1)
Quarter: 2013Q2

REPORT INFORMATION
  Report Type: Spontaneous
  Country: IT (occurrence: None)
  Receive Date: 20130507
  Receipt Date: 20130507
  Transmission Date: 20140414
  Serious: Yes (Other)
  Sender: FDA-Public Use
  Company Number: 1689843

PATIENT
  Age: 40 Year
  Sex: Female

DRUGS (5)
  1. DOCETAXEL [Suspect]
     Indication: BREAST CANCER
     Dosage: 150 MG MILLIGRAM(S), CYCLICAL, INTRAVENOUS
     Route: 042
     Dates: start: 20130108, end: 20130403
  2. (SOLDESAM) [Concomitant]
  3. (TRIMETON  /00072502/) [Concomitant]
  4. (ONDANSETRON KABI) [Concomitant]
  5. (RANIDIL) [Concomitant]

REACTIONS (3)
  - Bronchospasm [None]
  - Erythema [None]
  - Presyncope [None]
